FAERS Safety Report 16967711 (Version 3)
Quarter: 2020Q1

REPORT INFORMATION
  Report Type: Spontaneous
  Country: US (occurrence: US)
  Receive Date: 20191028
  Receipt Date: 20200116
  Transmission Date: 20200409
  Serious: Yes (Hospitalization, Other)
  Sender: FDA-Public Use
  Company Number: US-PFIZER INC-2019463110

PATIENT
  Age: 42 Year
  Sex: Female
  Weight: 82 kg

DRUGS (6)
  1. RELPAX [Suspect]
     Active Substance: ELETRIPTAN HYDROBROMIDE
     Indication: MIGRAINE
     Dosage: 40 MG, AS NEEDED (TAKES 1, THERE^S BEEN TIMES HAD TO TAKE 2 BUT VERY RARELY)
  2. PREDNISONE. [Concomitant]
     Active Substance: PREDNISONE
     Dosage: UNK
     Dates: start: 201901
  3. TESSALON [Concomitant]
     Active Substance: BENZONATATE
     Dosage: UNK
     Dates: start: 201901
  4. PROAIR [FLUTICASONE PROPIONATE] [Concomitant]
     Active Substance: FLUTICASONE PROPIONATE
     Dosage: UNK
     Dates: start: 201901
  5. RELPAX [Suspect]
     Active Substance: ELETRIPTAN HYDROBROMIDE
     Dosage: 20 MG, UNK
     Dates: start: 2002
  6. RELPAX [Suspect]
     Active Substance: ELETRIPTAN HYDROBROMIDE
     Dosage: 40 MG, (40MG TAB T Q 24 PEN MIGRAINE AS DIRECTED)
     Route: 048
     Dates: start: 20150615

REACTIONS (10)
  - Cough [Recovering/Resolving]
  - Pyrexia [Recovered/Resolved]
  - Epistaxis [Recovering/Resolving]
  - Hyperhidrosis [Recovered/Resolved]
  - Immunodeficiency [Not Recovered/Not Resolved]
  - Chills [Recovered/Resolved]
  - Recalled product administered [Unknown]
  - Influenza [Recovered/Resolved]
  - Malaise [Not Recovered/Not Resolved]
  - Autoimmune disorder [Not Recovered/Not Resolved]

NARRATIVE: CASE EVENT DATE: 2019
